FAERS Safety Report 10905975 (Version 1)
Quarter: 2015Q1

REPORT INFORMATION
  Report Type: Spontaneous
  Country: US (occurrence: US)
  Receive Date: 20150311
  Receipt Date: 20150311
  Transmission Date: 20150721
  Serious: No
  Sender: FDA-Public Use
  Company Number: US-GLAXOSMITHKLINE-US2015024365

PATIENT
  Age: 69 Year
  Sex: Male

DRUGS (15)
  1. ALBUTEROL INHALATIONAL POWDER [Concomitant]
     Active Substance: ALBUTEROL
  2. ACIDOPHILIS [Concomitant]
     Active Substance: LACTOBACILLUS ACIDOPHILUS
  3. ADVAIR DISKUS [Suspect]
     Active Substance: FLUTICASONE PROPIONATE\SALMETEROL XINAFOATE
     Indication: BRONCHITIS
     Dosage: 1 PUFF(S), BID
     Route: 055
     Dates: start: 20150211
  4. FISH OIL [Concomitant]
     Active Substance: FISH OIL
  5. MELATONIN [Concomitant]
     Active Substance: MELATONIN
  6. TOPROL XL [Concomitant]
     Active Substance: METOPROLOL SUCCINATE
  7. PREDNISONE. [Concomitant]
     Active Substance: PREDNISONE
  8. CRESTOR [Concomitant]
     Active Substance: ROSUVASTATIN CALCIUM
  9. TYLENOL PM [Concomitant]
     Active Substance: ACETAMINOPHEN\DIPHENHYDRAMINE
  10. VITAMIN D [Concomitant]
     Active Substance: CHOLECALCIFEROL
  11. ASPIRIN. [Concomitant]
     Active Substance: ASPIRIN
  12. COLACE [Concomitant]
     Active Substance: DOCUSATE SODIUM
  13. DIOVAN [Concomitant]
     Active Substance: VALSARTAN
  14. NEXIUM [Concomitant]
     Active Substance: ESOMEPRAZOLE MAGNESIUM
  15. METFORMIN [Concomitant]
     Active Substance: METFORMIN HYDROCHLORIDE

REACTIONS (2)
  - Dysphonia [Not Recovered/Not Resolved]
  - Rash [Recovered/Resolved]

NARRATIVE: CASE EVENT DATE: 20150218
